FAERS Safety Report 7935852-1 (Version None)
Quarter: 2011Q4

REPORT INFORMATION
  Report Type: 
  Country: None (occurrence: None)
  Receive Date: 20111123
  Receipt Date: 20111111
  Transmission Date: 20120403
  Serious: Yes (Other)
  Sender: FDA-Public Use
  Company Number: US-JNJFOC-20111105737

PATIENT
  Sex: Female

DRUGS (2)
  1. ELMIRON [Suspect]
     Indication: CYSTITIS INTERSTITIAL
     Route: 048
     Dates: end: 20111001
  2. ATERAX [Concomitant]
     Indication: CYSTITIS INTERSTITIAL
     Route: 048

REACTIONS (2)
  - COELIAC DISEASE [None]
  - CYSTITIS INTERSTITIAL [None]
